FAERS Safety Report 6640146-0 (Version None)
Quarter: 2010Q1

REPORT INFORMATION
  Report Type: 
  Country: None (occurrence: None)
  Receive Date: 20100318
  Receipt Date: 20100316
  Transmission Date: 20100710
  Serious: Yes (Life-Threatening, Hospitalization, Other)
  Sender: FDA-Public Use
  Company Number: FR-ROCHE-676173

PATIENT
  Sex: Male
  Weight: 100 kg

DRUGS (1)
  1. METHOXY POLYETHYLENE GLYCOL-EPOETIN BETA [Suspect]
     Route: 058
     Dates: start: 20090909, end: 20091216

REACTIONS (2)
  - MANTLE CELL LYMPHOMA [None]
  - THROMBOCYTOPENIA [None]
